FAERS Safety Report 4899973-2 (Version None)
Quarter: 2006Q1

REPORT INFORMATION
  Report Type: 
  Country: None (occurrence: None)
  Receive Date: 20060131
  Receipt Date: 20060119
  Transmission Date: 20060701
  Serious: Yes (Hospitalization, Other)
  Sender: FDA-Public Use
  Company Number: 2006010327

PATIENT
  Age: 19 Year
  Sex: Female
  Weight: 165 kg

DRUGS (1)
  1. DEPO-PROVERA [Suspect]
     Indication: CONTRACEPTION
     Dosage: 150 MG(150 MG, EVERY 3 MONTHS) INTRAMUSCULAR; APPROX. SINCE 3  YEARS
     Route: 030

REACTIONS (3)
  - MENINGITIS [None]
  - SPINAL CORD DISORDER [None]
  - WEIGHT DECREASED [None]
